FAERS Safety Report 19266121 (Version 1)
Quarter: 2021Q2

REPORT INFORMATION
  Report Type: Spontaneous
  Country: TR (occurrence: TR)
  Receive Date: 20210518
  Receipt Date: 20210518
  Transmission Date: 20210717
  Serious: Yes (Other)
  Sender: FDA-Public Use
  Company Number: TR-CELLTRION INC.-2021TR006569

PATIENT

DRUGS (9)
  1. INFLIXIMAB (UNKNOWN) [Suspect]
     Active Substance: INFLIXIMAB
     Dosage: UNK, SECOND INFUSION 13 DAYS AFTER THE FIRST
     Route: 064
  2. INFLIXIMAB (UNKNOWN) [Suspect]
     Active Substance: INFLIXIMAB
     Dosage: UNK, MAINTENANCE TREATMENT EVERY 8 WEEKS (FOR THE PAST 5 YEARS)
     Route: 064
  3. ISONIAZID. [Concomitant]
     Active Substance: ISONIAZID
     Dosage: 300 MG ONCE DAILY
     Route: 064
  4. METHYLPREDNISOLONE. [Concomitant]
     Active Substance: METHYLPREDNISOLONE
     Dosage: INCREASED TO 2.5 MG/KG ONCE DAILY ON THE 10TH DAY OF TREATMENT
     Route: 064
  5. INFLIXIMAB (UNKNOWN) [Suspect]
     Active Substance: INFLIXIMAB
     Dosage: 300 MG (5 MG/KG) AT 30 WEEKS GESTATION (1ST INFUSION)
     Route: 064
  6. METHYLPREDNISOLONE. [Concomitant]
     Active Substance: METHYLPREDNISOLONE
     Dosage: 1.5 MG/KG ONCE DAILY
     Route: 064
  7. METHYLPREDNISOLONE. [Concomitant]
     Active Substance: METHYLPREDNISOLONE
     Dosage: TAPERED TO 2 MG/KG ONCE DAILY
     Route: 064
  8. METHYLPREDNISOLONE. [Concomitant]
     Active Substance: METHYLPREDNISOLONE
     Dosage: REDUCED TO 1.5 MG/KG ONCE DAILY
     Route: 064
  9. INFLIXIMAB (UNKNOWN) [Suspect]
     Active Substance: INFLIXIMAB
     Dosage: UNK, 3RD INFUSION 8 WEEKS AFTER THE SECOND DOSE
     Route: 064

REACTIONS (4)
  - Premature baby [Unknown]
  - Foetal exposure during pregnancy [Unknown]
  - Jaundice neonatal [Recovered/Resolved]
  - Low birth weight baby [Unknown]
